FAERS Safety Report 10083366 (Version 1)
Quarter: 2014Q2

REPORT INFORMATION
  Report Type: Spontaneous
  Country: GB (occurrence: GB)
  Receive Date: 20140417
  Receipt Date: 20140417
  Transmission Date: 20141212
  Serious: Yes (Other)
  Sender: FDA-Public Use
  Company Number: GB-RANBAXY-2014RR-80406

PATIENT
  Age: 30 Year
  Sex: Female

DRUGS (1)
  1. CODEINE [Suspect]
     Indication: ABDOMINAL PAIN LOWER
     Dosage: UNK
     Route: 048
     Dates: start: 20140322, end: 20140322

REACTIONS (1)
  - Chest pain [Recovered/Resolved]
